FAERS Safety Report 17265142 (Version 1)
Quarter: 2020Q1

REPORT INFORMATION
  Report Type: Report from Study
  Country: US (occurrence: US)
  Receive Date: 20200113
  Receipt Date: 20200113
  Transmission Date: 20200409
  Serious: No
  Sender: FDA-Public Use
  Company Number: NVSC2020US006559

PATIENT
  Sex: Female

DRUGS (1)
  1. GILENYA [Suspect]
     Active Substance: FINGOLIMOD HYDROCHLORIDE
     Indication: MULTIPLE SCLEROSIS
     Dosage: 0.5 MG, QD, ONE CAPSULE BY  MOUTH
     Route: 048
     Dates: start: 20151003

REACTIONS (5)
  - Headache [Unknown]
  - Depression [Unknown]
  - Product dose omission [Unknown]
  - White blood cell count decreased [Unknown]
  - Spinal pain [Unknown]
